FAERS Safety Report 5244304-1 (Version None)
Quarter: 2007Q1

REPORT INFORMATION
  Report Type: 
  Country: None (occurrence: None)
  Receive Date: 20070222
  Receipt Date: 20070216
  Transmission Date: 20070707
  Serious: Yes (Hospitalization)
  Sender: FDA-Public Use
  Company Number: 2007PK00316

PATIENT
  Age: 53 Year
  Sex: Female

DRUGS (2)
  1. METOPROLOL SUCCINATE [Suspect]
     Route: 048
  2. RAMIPRIL/HYDROCHLOROTHIAZIDE [Suspect]
     Dosage: 100 MG/ 500 MG
     Route: 048

REACTIONS (4)
  - DEPRESSION [None]
  - DRUG TOXICITY [None]
  - HYPOTENSION [None]
  - RENAL FAILURE ACUTE [None]
